FAERS Safety Report 5727915-6 (Version None)
Quarter: 2008Q2

REPORT INFORMATION
  Report Type: 
  Country: None (occurrence: None)
  Receive Date: 20080430
  Receipt Date: 20080416
  Transmission Date: 20081010
  Serious: No
  Sender: FDA-Public Use
  Company Number: 231295J08USA

PATIENT
  Age: 54 Year
  Sex: Male

DRUGS (2)
  1. REBIF [Suspect]
     Indication: MULTIPLE SCLEROSIS
     Dosage: 22 MCG, 3IN 1 WEEKS, SUBCUTANEOUS
     Route: 058
     Dates: start: 20080115, end: 20080305
  2. UNSPECIFIED MEDICATIONS (ALL OTHER THERAPEUTIC PRODUCTS) [Concomitant]

REACTIONS (2)
  - CEREBROVASCULAR ARTERIOVENOUS MALFORMATION [None]
  - TREATMENT NONCOMPLIANCE [None]
